FAERS Safety Report 16134934 (Version 1)
Quarter: 2019Q1

REPORT INFORMATION
  Report Type: Spontaneous
  Country: IT (occurrence: IT)
  Receive Date: 20190329
  Receipt Date: 20190329
  Transmission Date: 20190418
  Serious: Yes (Hospitalization)
  Sender: FDA-Public Use
  Company Number: IT-PFIZER INC-2019132762

PATIENT
  Age: 77 Year
  Sex: Male

DRUGS (7)
  1. BRILIQUE [Concomitant]
     Active Substance: TICAGRELOR
     Dosage: UNK
  2. RAMIPRIL. [Suspect]
     Active Substance: RAMIPRIL
     Indication: DRUG ABUSE
     Dosage: UNK
     Route: 065
     Dates: start: 20180709, end: 20180709
  3. LORAZEPAM. [Suspect]
     Active Substance: LORAZEPAM
     Indication: DRUG ABUSE
     Dosage: UNK
     Route: 065
     Dates: start: 20180709, end: 20180709
  4. NEBIVOLOL. [Suspect]
     Active Substance: NEBIVOLOL
     Indication: DRUG ABUSE
     Dosage: UNK
     Route: 065
     Dates: start: 20180709, end: 20180709
  5. LANSOX [Concomitant]
     Active Substance: LANSOPRAZOLE
     Dosage: UNK
  6. ACETYLSALICYLIC ACID [Concomitant]
     Active Substance: ASPIRIN
     Dosage: UNK
  7. TORVAST [Concomitant]
     Active Substance: ATORVASTATIN
     Dosage: UNK

REACTIONS (3)
  - Intentional product misuse [Unknown]
  - Agitation [Unknown]
  - Drug abuse [Unknown]

NARRATIVE: CASE EVENT DATE: 20180709
